FAERS Safety Report 22979228 (Version 6)
Quarter: 2023Q4

REPORT INFORMATION
  Report Type: Report from Study
  Country: US (occurrence: US)
  Receive Date: 20230925
  Receipt Date: 20231110
  Transmission Date: 20240110
  Serious: Yes (Other)
  Sender: FDA-Public Use
  Company Number: US-PFIZER INC-PV202300154894

PATIENT
  Age: 59 Year
  Sex: Male
  Weight: 91 kg

DRUGS (8)
  1. NURTEC ODT [Suspect]
     Active Substance: RIMEGEPANT SULFATE
     Indication: Cluster headache
     Dosage: 150 MG, ALTERNATE DAY
     Route: 048
     Dates: start: 20230901, end: 20230907
  2. ACETAMINOPHEN\CAFFEINE [Concomitant]
     Active Substance: ACETAMINOPHEN\CAFFEINE
     Indication: Cluster headache
     Dosage: A DOSE, 1-2 TIMES DAILY
     Route: 048
     Dates: start: 2020
  3. ACETAMINOPHEN\CAFFEINE [Concomitant]
     Active Substance: ACETAMINOPHEN\CAFFEINE
     Indication: Migraine
  4. SUMATRIPTAN [Concomitant]
     Active Substance: SUMATRIPTAN
     Indication: Cluster headache
     Dosage: 100 MG, 1X/DAY
     Route: 048
     Dates: start: 2020
  5. SUMATRIPTAN [Concomitant]
     Active Substance: SUMATRIPTAN
     Indication: Cluster headache
     Dosage: 20 MG, AS NEEDED (NASAL INHALATION)
     Route: 045
     Dates: start: 2020
  6. SUMATRIPTAN [Concomitant]
     Active Substance: SUMATRIPTAN
     Indication: Cluster headache
     Dosage: 4 MG/0.5 ML INJECTION PEN, AS NEEDED
     Route: 058
     Dates: start: 20210927
  7. OXYGEN [Concomitant]
     Active Substance: OXYGEN
     Indication: Cluster headache
     Dosage: UNK
     Route: 045
     Dates: start: 2020
  8. LIDOCAINE [Concomitant]
     Active Substance: LIDOCAINE
     Indication: Cluster headache
     Dosage: UNK
     Route: 045
     Dates: start: 2022

REACTIONS (2)
  - Alanine aminotransferase increased [Recovering/Resolving]
  - Aspartate aminotransferase increased [Recovered/Resolved]

NARRATIVE: CASE EVENT DATE: 20230911
